FAERS Safety Report 22616786 (Version 2)
Quarter: 2025Q2

REPORT INFORMATION
  Report Type: Spontaneous
  Country: AU (occurrence: AU)
  Receive Date: 20230619
  Receipt Date: 20250623
  Transmission Date: 20250717
  Serious: Yes (Other)
  Sender: ORGANON
  Company Number: AU-ORGANON-O2306AUS002261

PATIENT
  Age: 57 Year
  Sex: Male

DRUGS (11)
  1. MONTELUKAST SODIUM [Suspect]
     Active Substance: MONTELUKAST SODIUM
  2. AZATHIOPRINE [Suspect]
     Active Substance: AZATHIOPRINE
  3. CYCLOSPORINE [Suspect]
     Active Substance: CYCLOSPORINE
  4. IBRUTINIB [Suspect]
     Active Substance: IBRUTINIB
  5. IMATINIB [Suspect]
     Active Substance: IMATINIB
  6. METHOTREXATE [Suspect]
     Active Substance: METHOTREXATE
  7. METHYLPREDNISOLONE [Suspect]
     Active Substance: METHYLPREDNISOLONE
  8. MYCOPHENOLATE MOFETIL [Suspect]
     Active Substance: MYCOPHENOLATE MOFETIL
  9. PREDNISONE [Suspect]
     Active Substance: PREDNISONE
  10. RITUXIMAB [Suspect]
     Active Substance: RITUXIMAB
  11. TACROLIMUS [Suspect]
     Active Substance: TACROLIMUS

REACTIONS (2)
  - Chronic graft versus host disease [Unknown]
  - Drug ineffective [Unknown]
